FAERS Safety Report 5989466-3 (Version None)
Quarter: 2008Q4

REPORT INFORMATION
  Report Type: 
  Country: None (occurrence: None)
  Receive Date: 20081205
  Receipt Date: 20081119
  Transmission Date: 20090506
  Serious: Yes (Other)
  Sender: FDA-Public Use
  Company Number: DSA_32740_2008

PATIENT
  Sex: Female

DRUGS (5)
  1. CARDIZEM [Suspect]
     Indication: DRUG USE FOR UNKNOWN INDICATION
     Dosage: DF ORAL
     Route: 048
     Dates: start: 19730101, end: 20080801
  2. DILTIAZEM [Suspect]
     Indication: DRUG USE FOR UNKNOWN INDICATION
     Dosage: 120 MG
     Dates: start: 20080801, end: 20080901
  3. LEVOXYL [Concomitant]
  4. LISINOPRIL AND HYDROCHLOROTHIAZIDE [Concomitant]
  5. CARTIA XT [Concomitant]

REACTIONS (6)
  - ARTHROPATHY [None]
  - BLOOD PRESSURE INCREASED [None]
  - CATARACT [None]
  - DIZZINESS [None]
  - FEELING ABNORMAL [None]
  - VOMITING [None]
